APPROVED DRUG PRODUCT: PIPERACILLIN AND TAZOBACTAM
Active Ingredient: PIPERACILLIN SODIUM; TAZOBACTAM SODIUM
Strength: EQ 36GM BASE/VIAL;EQ 4.5GM BASE/VIAL
Dosage Form/Route: INJECTABLE;INJECTION
Application: A203720 | Product #001 | TE Code: AP
Applicant: FRESENIUS KABI ANTI INFECTIVES SRL
Approved: May 11, 2018 | RLD: No | RS: No | Type: RX